FAERS Safety Report 13121887 (Version 1)
Quarter: 2017Q1

REPORT INFORMATION
  Report Type: Spontaneous
  Country: US (occurrence: US)
  Receive Date: 20170117
  Receipt Date: 20170117
  Transmission Date: 20170428
  Serious: No
  Sender: FDA-Public Use
  Company Number: US-BAYER-2017-008757

PATIENT
  Age: 58 Year
  Sex: Male
  Weight: 131.52 kg

DRUGS (4)
  1. BISACODYL. [Concomitant]
     Active Substance: BISACODYL
     Dosage: UNK
     Route: 048
  2. LACTULOSE. [Concomitant]
     Active Substance: LACTULOSE
     Indication: GASTROINTESTINAL DISORDER
     Dosage: UNK
  3. BISACODYL. [Concomitant]
     Active Substance: BISACODYL
     Dosage: UNK
     Route: 048
  4. MIRALAX [Suspect]
     Active Substance: POLYETHYLENE GLYCOL 3350
     Indication: GASTROINTESTINAL DISORDER
     Dosage: 80-100 PER DOSE, BID
     Route: 048
     Dates: start: 2015

REACTIONS (2)
  - Product use issue [Unknown]
  - Product use issue [Not Recovered/Not Resolved]

NARRATIVE: CASE EVENT DATE: 2015
